FAERS Safety Report 8304392-2 (Version None)
Quarter: 2012Q2

REPORT INFORMATION
  Report Type: 
  Country: None (occurrence: None)
  Receive Date: 20120423
  Receipt Date: 20120416
  Transmission Date: 20120825
  Serious: Yes (Other)
  Sender: FDA-Public Use
  Company Number: US-INCYTE CORPORATION-2012IN000328

PATIENT
  Sex: Female
  Weight: 53.061 kg

DRUGS (17)
  1. JAKAFI [Suspect]
     Indication: MYELOFIBROSIS
     Dosage: 5 MG, BID
     Dates: start: 20120213
  2. KLOR-CON [Concomitant]
     Dosage: 10 MEQ, QOD
  3. ACETAMINOPHEN [Concomitant]
     Dosage: 500 MG, QD (IN EVENING)
  4. ALLOPURINOL [Concomitant]
     Dosage: 100 MG, QD
     Route: 048
  5. DIGOXIN [Concomitant]
     Dosage: 0.125 MG, UNK
  6. TOPROL-XL [Concomitant]
     Dosage: 50 MG, QD
  7. SYNTHROID [Concomitant]
     Dosage: 75 MCG, QD
  8. ULTRAM [Concomitant]
     Indication: PAIN
     Dosage: 50 MG, QID PRN
  9. TIMOLOL MALEATE [Concomitant]
     Dosage: 1 GTT, TO EYE ONCE OR TWICE DAILY
  10. TRAVATAN [Concomitant]
     Dosage: 1 GTT TO EYE, QD
  11. LOSARTAN [Concomitant]
     Dosage: 25 MG, QD
  12. LASIX [Concomitant]
     Dosage: 20 MG, QOD
  13. ZOLOFT [Concomitant]
     Dosage: 50 MG, QD
  14. WARFARIN SODIUM [Concomitant]
     Dosage: 1 TAB (2,4,5,6 MG), QD OR AS DIRECTED
  15. PRILOSEC [Concomitant]
     Dosage: 1 CAPSULE, QD (EVERY MORNING)
  16. MELOXICAM [Concomitant]
     Dosage: 15 MG, QD WITH A MEAL
  17. MULTI-VITAMIN [Concomitant]
     Dosage: UNK, QD

REACTIONS (1)
  - ASTHENIA [None]
